FAERS Safety Report 8339569-3 (Version None)
Quarter: 2012Q2

REPORT INFORMATION
  Report Type: 
  Country: None (occurrence: None)
  Receive Date: 20120507
  Receipt Date: 20120501
  Transmission Date: 20120825
  Serious: Yes (Other)
  Sender: FDA-Public Use
  Company Number: PHEH2012US007250

PATIENT
  Sex: Male

DRUGS (2)
  1. SANDOSTATIN LAR [Suspect]
     Indication: NEUROENDOCRINE CARCINOMA
     Dosage: 60 MG, UNK
  2. SANDOSTATIN LAR [Suspect]
     Dosage: 40 MG, UNK
     Dates: start: 20111001

REACTIONS (1)
  - NEOPLASM MALIGNANT [None]
